FAERS Safety Report 4558570-9 (Version None)
Quarter: 2005Q1

REPORT INFORMATION
  Report Type: 
  Country: None (occurrence: None)
  Receive Date: 20050121
  Receipt Date: 20050118
  Transmission Date: 20050727
  Serious: Yes (Hospitalization)
  Sender: FDA-Public Use
  Company Number: US-BRISTOL-MYERS SQUIBB COMPANY-12826855

PATIENT
  Sex: Male

DRUGS (13)
  1. DILTIAZEM HCL [Suspect]
  2. LISINOPRIL [Suspect]
     Route: 048
  3. FUROSEMIDE [Suspect]
  4. TERAZOSIN [Suspect]
  5. COMBIVENT [Concomitant]
  6. ALENDRONATE SODIUM [Concomitant]
  7. BUPROPION HCL [Concomitant]
  8. CALCIUM CARBONATE [Concomitant]
  9. FLUNISOLIDE [Concomitant]
  10. POTASSIUM [Concomitant]
  11. PREDNISONE [Concomitant]
  12. RANITIDINE [Concomitant]
  13. ALBUTEROL [Concomitant]

REACTIONS (2)
  - BLOOD PRESSURE [None]
  - TACHYPNOEA [None]
